FAERS Safety Report 9032651 (Version 2)
Quarter: 2013Q1

REPORT INFORMATION
  Report Type: Report from Study
  Country: US (occurrence: US)
  Receive Date: 20130126
  Receipt Date: 20130222
  Transmission Date: 20140127
  Serious: Yes (Other)
  Sender: FDA-Public Use
  Company Number: US-US-EMD SERONO, INC.-7188622

PATIENT
  Sex: Female
  Weight: 44 kg

DRUGS (3)
  1. SAIZEN [(SOMATROPIN (RDNA ORIGIN) FOR INJECTION)] [Suspect]
     Indication: GROWTH HORMONE DEFICIENCY
     Route: 057
     Dates: start: 20101003
  2. SAIZEN [(SOMATROPIN (RDNA ORIGIN) FOR INJECTION)] [Suspect]
     Route: 057
     Dates: start: 201210
  3. LEVOXYL [Concomitant]
     Indication: HYPOTHYROIDISM

REACTIONS (2)
  - Crohn^s disease [Unknown]
  - Aggression [Unknown]
